FAERS Safety Report 11695519 (Version 2)
Quarter: 2015Q4

REPORT INFORMATION
  Report Type: Spontaneous
  Country: GB (occurrence: GB)
  Receive Date: 20151104
  Receipt Date: 20151204
  Transmission Date: 20160304
  Serious: Yes (Hospitalization)
  Sender: FDA-Public Use
  Company Number: GB-AMGEN-GBRSP2015114739

PATIENT
  Age: 88 Year
  Sex: Female
  Weight: 39.1 kg

DRUGS (14)
  1. RISEDRONATE SODIUM. [Concomitant]
     Active Substance: RISEDRONATE SODIUM
     Dosage: 35 MG, ONE TO BE TAKEN ON THE SAME DAY EACH WEEK
  2. WHITE SOFT PARAFFIN [Concomitant]
     Dosage: UNK UNK, AS NECESSARY
  3. LACRI-LUBE [Concomitant]
     Dosage: UNK UNK, AS NECESSARY
  4. RANITIDINE [Concomitant]
     Active Substance: RANITIDINE\RANITIDINE HYDROCHLORIDE
     Dosage: 150 MG, BID
  5. WARFARIN [Concomitant]
     Active Substance: WARFARIN
     Dosage: 1 MG, AS DIRECTED
  6. PROLIA [Suspect]
     Active Substance: DENOSUMAB
     Indication: OSTEOPOROSIS
     Dosage: 60 MG, Q6MO
     Route: 058
     Dates: start: 2014
  7. PARACETAMOL [Concomitant]
     Active Substance: ACETAMINOPHEN
     Dosage: 500 MG, QID AS REQUIRED
  8. ENSURE COMPACT [Concomitant]
     Dosage: UNK UNK, QD
  9. MEBEVERINE [Concomitant]
     Active Substance: MEBEVERINE
     Dosage: 135 MG, TID
  10. MIRTAZAPINE. [Concomitant]
     Active Substance: MIRTAZAPINE
     Dosage: UNK, QHS
  11. OILATUM                            /00103901/ [Concomitant]
     Dosage: UNK, ASD
  12. POTASSIUM BICARBONATE W/SODIUM ALGINATE [Concomitant]
     Dosage: UNK, THREE TIMES A DAY AFTER FOOD AND AT NIGHT WHEN REQUIRED
  13. TRIMETHOPRIM. [Concomitant]
     Active Substance: TRIMETHOPRIM
     Dosage: 200 MG, BID
  14. CALCIUM CARBONATE W/COLECALCIFEROL [Concomitant]
     Active Substance: CALCIUM CARBONATE\CHOLECALCIFEROL
     Dosage: 2 TAB, QD (ONE TAB EACH MORNING AND EVENING)

REACTIONS (6)
  - Contusion [Unknown]
  - Inappropriate schedule of drug administration [Unknown]
  - Injection site swelling [Recovering/Resolving]
  - Dizziness [Recovered/Resolved]
  - Fall [Unknown]
  - Rib fracture [Unknown]

NARRATIVE: CASE EVENT DATE: 20151019
